FAERS Safety Report 8563523-X (Version None)
Quarter: 2012Q3

REPORT INFORMATION
  Report Type: 
  Country: None (occurrence: None)
  Receive Date: 20120802
  Receipt Date: 20120731
  Transmission Date: 20120928
  Serious: Yes (Death, Hospitalization)
  Sender: FDA-Public Use
  Company Number: AU-AMGEN-AUSSP2012046962

PATIENT
  Age: 54 Year
  Sex: Female

DRUGS (4)
  1. NEULASTA [Suspect]
     Indication: CHEMOTHERAPY
  2. TAXOTERE [Concomitant]
     Indication: BREAST CANCER
  3. CYCLOPHOSPHAMIDE [Concomitant]
     Indication: BREAST CANCER
  4. NEULASTA [Suspect]
     Indication: NEUTROPENIA

REACTIONS (4)
  - SEPSIS [None]
  - PNEUMONIA [None]
  - HYPOTENSION [None]
  - LACTIC ACIDOSIS [None]
